FAERS Safety Report 23686846 (Version 2)
Quarter: 2024Q3

REPORT INFORMATION
  Report Type: Spontaneous
  Country: US (occurrence: US)
  Receive Date: 20240329
  Receipt Date: 20240703
  Transmission Date: 20241017
  Serious: No
  Sender: BIOGEN
  Company Number: US-BIOGEN-2021BI01032946

PATIENT
  Sex: Female

DRUGS (4)
  1. PLEGRIDY [Suspect]
     Active Substance: PEGINTERFERON BETA-1A
     Indication: Multiple sclerosis
     Dosage: INJECT 1 PREFILLED PEN SUBCUTANEOUSLY EVERY 14 DAYS
     Route: 050
  2. PLEGRIDY [Suspect]
     Active Substance: PEGINTERFERON BETA-1A
     Indication: Multiple sclerosis
     Dosage: INJECTION?INJECT 125MCG SUBCUTANEOUSLY EVERY 2 WEEKS
     Route: 050
     Dates: start: 20150224
  3. SYNTHROID [Concomitant]
     Active Substance: LEVOTHYROXINE SODIUM
     Route: 050
  4. NOVOLOG [Concomitant]
     Active Substance: INSULIN ASPART
     Route: 050

REACTIONS (9)
  - Feeling abnormal [Unknown]
  - Multiple sclerosis [Unknown]
  - Malaise [Unknown]
  - Fatigue [Recovered/Resolved]
  - Influenza like illness [Unknown]
  - Chills [Unknown]
  - Pain [Recovered/Resolved]
  - Pyrexia [Recovered/Resolved]
  - Asthenia [Recovered/Resolved]
